FAERS Safety Report 9164837 (Version 1)
Quarter: 2013Q1

REPORT INFORMATION
  Report Type: Spontaneous
  Country: US (occurrence: None)
  Receive Date: 20130227
  Receipt Date: 20130227
  Transmission Date: 20140127
  Serious: Yes (Hospitalization)
  Sender: FDA-Public Use
  Company Number: 140458

PATIENT
  Age: 68 Year
  Sex: Male
  Weight: 77 kg

DRUGS (1)
  1. LEUCOVORIN CALCIUM FOR INJ. 50MG - BEDFORD LABS, INC. [Suspect]
     Dates: start: 20120507

REACTIONS (6)
  - Lung infection [None]
  - Staphylococcus test positive [None]
  - Bundle branch block right [None]
  - Chronic obstructive pulmonary disease [None]
  - Oesophageal adenocarcinoma [None]
  - Adenocarcinoma [None]
